FAERS Safety Report 4901963-8 (Version None)
Quarter: 2006Q1

REPORT INFORMATION
  Report Type: 
  Country: None (occurrence: None)
  Receive Date: 20060201
  Receipt Date: 20060201
  Transmission Date: 20060701
  Serious: Yes (Other)
  Sender: FDA-Public Use
  Company Number: None

PATIENT
  Age: 78 Year
  Sex: Male
  Weight: 84.369 kg

DRUGS (1)
  1. FORMOTEROL INHALER [Suspect]
     Indication: CHRONIC OBSTRUCTIVE PULMONARY DISEASE
     Dosage: 1 CAP BID
     Dates: start: 20050627, end: 20050630

REACTIONS (1)
  - MUSCLE SPASMS [None]
